FAERS Safety Report 5659708-2 (Version None)
Quarter: 2008Q1

REPORT INFORMATION
  Report Type: 
  Country: None (occurrence: None)
  Receive Date: 20080311
  Receipt Date: 20070626
  Transmission Date: 20080703
  Serious: No
  Sender: FDA-Public Use
  Company Number: US-BAYER-200712035BCC

PATIENT
  Age: 81 Year
  Sex: Female
  Weight: 66 kg

DRUGS (5)
  1. ALEVE [Suspect]
     Indication: PAIN IN EXTREMITY
     Dosage: TOTAL DAILY DOSE: 440 MG  UNIT DOSE: 220 MG
     Route: 048
     Dates: start: 20070616
  2. BAYER CHEWABLE ORANGE ASPIRIN [Suspect]
     Indication: ISCHAEMIC HEART DISEASE PROPHYLAXIS
     Dosage: TOTAL DAILY DOSE: 81 MG  UNIT DOSE: 81 MG
     Route: 048
     Dates: start: 20070616
  3. CARTIA XT [Concomitant]
  4. LIPITOR [Concomitant]
  5. DETROL [Concomitant]

REACTIONS (1)
  - STOMACH DISCOMFORT [None]
